FAERS Safety Report 9227056 (Version 1)
Quarter: 2013Q2

REPORT INFORMATION
  Report Type: Spontaneous
  Country: US (occurrence: None)
  Receive Date: 20130410
  Receipt Date: 20130410
  Transmission Date: 20140414
  Serious: Yes (Hospitalization, Other)
  Sender: FDA-Public Use
  Company Number: None

PATIENT
  Age: 67 Year
  Sex: Male

DRUGS (2)
  1. ZYTIGA [Suspect]
     Dosage: 1000MG QD PO
     Route: 048
     Dates: start: 20130214
  2. PREDNISONE [Concomitant]

REACTIONS (3)
  - Drug dose omission [None]
  - Blood potassium decreased [None]
  - Blood magnesium decreased [None]
